FAERS Safety Report 7495658-7 (Version None)
Quarter: 2011Q2

REPORT INFORMATION
  Report Type: 
  Country: None (occurrence: None)
  Receive Date: 20110523
  Receipt Date: 20110517
  Transmission Date: 20111010
  Serious: No
  Sender: FDA-Public Use
  Company Number: US-PFIZER INC-2011106534

PATIENT
  Sex: Female
  Weight: 104.31 kg

DRUGS (3)
  1. PRISTIQ [Suspect]
     Indication: DEPRESSION
     Dosage: 50 MG, DAILY
     Route: 048
     Dates: start: 20100901
  2. PRISTIQ [Suspect]
     Indication: ANXIETY
  3. CLARITIN [Concomitant]
     Indication: HYPERSENSITIVITY
     Dosage: UNK
     Dates: start: 20080101

REACTIONS (3)
  - MEDICATION RESIDUE [None]
  - DRUG INEFFECTIVE [None]
  - HEADACHE [None]
